FAERS Safety Report 5520482-1 (Version None)
Quarter: 2007Q4

REPORT INFORMATION
  Report Type: 
  Country: None (occurrence: None)
  Receive Date: 20071119
  Receipt Date: 20071107
  Transmission Date: 20080405
  Serious: Yes (Hospitalization)
  Sender: FDA-Public Use
  Company Number: FR-ELI_LILLY_AND_COMPANY-FR200711002121

PATIENT
  Age: 67 Year
  Sex: Female
  Weight: 51 kg

DRUGS (7)
  1. GEMZAR [Suspect]
     Indication: ADENOCARCINOMA PANCREAS
     Dosage: 1500 MG, OTHER
     Route: 042
     Dates: start: 20070529, end: 20070827
  2. PLITICAN [Concomitant]
     Indication: PROPHYLAXIS OF NAUSEA AND VOMITING
     Dosage: UNK, UNKNOWN
     Route: 065
  3. EUROBIOL [Concomitant]
     Dosage: UNK, UNKNOWN
     Route: 065
  4. URSOLVAN-200 [Concomitant]
     Dosage: UNK, UNKNOWN
     Route: 065
  5. TAVANIC [Concomitant]
     Dosage: UNK, UNKNOWN
     Route: 065
  6. CIPROFLOXACIN HCL [Concomitant]
     Dosage: UNK, UNKNOWN
     Route: 065
  7. TARDYFERON [Concomitant]
     Dosage: UNK, UNKNOWN
     Route: 065

REACTIONS (12)
  - ABDOMINAL PAIN [None]
  - ANAEMIA [None]
  - ANASTOMOTIC STENOSIS [None]
  - ANOREXIA [None]
  - ASTHENIA [None]
  - CHOLANGITIS [None]
  - HEADACHE [None]
  - JAUNDICE [None]
  - MALAISE [None]
  - NEUTROPENIA [None]
  - PYREXIA [None]
  - THROMBOCYTOPENIA [None]
